FAERS Safety Report 24585500 (Version 1)
Quarter: 2024Q4

REPORT INFORMATION
  Report Type: Spontaneous
  Country: DE (occurrence: DE)
  Receive Date: 20241106
  Receipt Date: 20241106
  Transmission Date: 20250114
  Serious: Yes (Other)
  Sender: BAYER HEALTHCARE PHARMACEUTICALS INC.
  Company Number: None

PATIENT
  Age: 37 Year
  Sex: Female
  Weight: 56 kg

DRUGS (1)
  1. MOXIFLOXACIN HYDROCHLORIDE [Suspect]
     Active Substance: MOXIFLOXACIN HYDROCHLORIDE
     Indication: Sinusitis bacterial
     Dosage: 400 MG
     Route: 048
     Dates: start: 20240122, end: 20240128

REACTIONS (10)
  - Circulatory collapse [None]
  - Paraesthesia [Recovering/Resolving]
  - Pain in extremity [Recovering/Resolving]
  - Myalgia [Recovering/Resolving]
  - Fatigue [Recovering/Resolving]
  - Asthenia [Recovering/Resolving]
  - Chronic gastritis [Recovering/Resolving]
  - Asthenia [Unknown]
  - Loss of personal independence in daily activities [None]
  - Weight decreased [None]

NARRATIVE: CASE EVENT DATE: 20240101
